FAERS Safety Report 4383133-8 (Version None)
Quarter: 2004Q2

REPORT INFORMATION
  Report Type: 
  Country: None (occurrence: None)
  Receive Date: 20040623
  Receipt Date: 20040521
  Transmission Date: 20050107
  Serious: Yes (Other)
  Sender: FDA-Public Use
  Company Number: US-BRISTOL-MYERS SQUIBB COMPANY-12594065

PATIENT
  Age: 69 Year
  Sex: Female
  Weight: 82 kg

DRUGS (4)
  1. MUTAMYCIN [Suspect]
     Indication: ANAL CANCER
     Route: 042
     Dates: start: 20040506, end: 20040506
  2. FLUOROURACIL [Suspect]
  3. PAXIL [Concomitant]
  4. RADIATION THERAPY [Concomitant]

REACTIONS (1)
  - HAEMOLYTIC ANAEMIA [None]
